FAERS Safety Report 8073922-0 (Version None)
Quarter: 2011Q4

REPORT INFORMATION
  Report Type: 
  Country: None (occurrence: None)
  Receive Date: 20111221
  Receipt Date: 20110324
  Transmission Date: 20120403
  Serious: Yes (Hospitalization)
  Sender: FDA-Public Use
  Company Number: PHHY2010US26100

PATIENT
  Age: 30 Year
  Sex: Male
  Weight: 73.5 kg

DRUGS (6)
  1. DEMEROL [Concomitant]
  2. HYDREA [Concomitant]
  3. EXJADE [Suspect]
     Dosage: 1000 MG, BID, ORAL
     Route: 048
  4. XOLOX (XOLOX) [Concomitant]
  5. NEMEROL (NEMEROL) [Concomitant]
  6. OXYCODONE HCL [Concomitant]

REACTIONS (3)
  - PAIN [None]
  - ARTHRALGIA [None]
  - SICKLE CELL ANAEMIA WITH CRISIS [None]
